FAERS Safety Report 4714222-3 (Version None)
Quarter: 2005Q2

REPORT INFORMATION
  Report Type: 
  Country: None (occurrence: None)
  Receive Date: 20050630
  Receipt Date: 20040825
  Transmission Date: 20051028
  Serious: Yes (Other)
  Sender: FDA-Public Use
  Company Number: 236140

PATIENT
  Age: 54 Year
  Sex: Male
  Weight: 74.4 kg

DRUGS (4)
  1. KLONOPIN [Suspect]
     Indication: ANXIETY
     Dosage: 2 MG 2 PER DAY ORAL
     Route: 048
     Dates: start: 19970815, end: 20010520
  2. KLONOPIN [Suspect]
     Indication: DEPRESSION
     Dosage: 2 MG 2 PER DAY ORAL
     Route: 048
     Dates: start: 19970815, end: 20010520
  3. PROZAC [Concomitant]
  4. XANAX [Concomitant]

REACTIONS (7)
  - AGORAPHOBIA [None]
  - ANXIETY [None]
  - CONDITION AGGRAVATED [None]
  - DEPRESSION [None]
  - DRUG WITHDRAWAL SYNDROME [None]
  - INSOMNIA [None]
  - SOMNOLENCE [None]
